FAERS Safety Report 13416506 (Version 5)
Quarter: 2017Q3

REPORT INFORMATION
  Report Type: Spontaneous
  Country: KR (occurrence: KR)
  Receive Date: 20170407
  Receipt Date: 20170823
  Transmission Date: 20171127
  Serious: Yes (Hospitalization, Other)
  Sender: FDA-Public Use
  Company Number: KR-009507513-1704KOR001910

PATIENT
  Age: 58 Year
  Sex: Male
  Weight: 56 kg

DRUGS (40)
  1. EMEND (FOSAPREPITANT DIMEGLUMINE) [Suspect]
     Active Substance: FOSAPREPITANT DIMEGLUMINE
     Indication: PROPHYLAXIS OF NAUSEA AND VOMITING
     Dosage: 150 MG, ONCE
     Route: 042
     Dates: start: 20160513, end: 20160513
  2. EPS [Concomitant]
     Dosage: 115 MG, ONCE, CYCLE 6, STRENGTH: 100MG/5ML
     Route: 042
     Dates: start: 20160920, end: 20160920
  3. CISPLATIN. [Concomitant]
     Active Substance: CISPLATIN
     Indication: SMALL CELL LUNG CANCER
     Dosage: 105 MG, ONCE, CYCLE 1, STRENGTH: 50MG/100ML
     Route: 042
     Dates: start: 20160513, end: 20160513
  4. DEXAMETHASONE SODIUM PHOSPHATE. [Concomitant]
     Active Substance: DEXAMETHASONE SODIUM PHOSPHATE
     Dosage: 12 MG, ONCE, STRENGTH: 5MG/ML
     Route: 042
     Dates: start: 20160818, end: 20160818
  5. DEXAMETHASONE. [Concomitant]
     Active Substance: DEXAMETHASONE
     Dosage: 4 MG, QD
     Route: 048
     Dates: start: 20160727, end: 20160729
  6. ALOXI [Concomitant]
     Active Substance: PALONOSETRON HYDROCHLORIDE
     Indication: PREMEDICATION
     Dosage: 5 ML, ONCE
     Route: 042
     Dates: start: 20160513, end: 20160513
  7. DEXAMETHASONE. [Concomitant]
     Active Substance: DEXAMETHASONE
     Indication: PROPHYLAXIS
     Dosage: 8 MG, QD
     Route: 048
     Dates: start: 20160514, end: 20160516
  8. ALOXI [Concomitant]
     Active Substance: PALONOSETRON HYDROCHLORIDE
     Dosage: 5 ML, ONCE
     Route: 042
     Dates: start: 20160611, end: 20160611
  9. EMEND (FOSAPREPITANT DIMEGLUMINE) [Suspect]
     Active Substance: FOSAPREPITANT DIMEGLUMINE
     Dosage: 150 MG, ONCE
     Route: 042
     Dates: start: 20160726, end: 20160726
  10. EPS [Concomitant]
     Dosage: 115 MG, ONCE, CYCLE 3, STRENGTH: 100MG/5ML
     Route: 042
     Dates: start: 20160630, end: 20160630
  11. DEXAMETHASONE SODIUM PHOSPHATE. [Concomitant]
     Active Substance: DEXAMETHASONE SODIUM PHOSPHATE
     Indication: PROPHYLAXIS OF NAUSEA AND VOMITING
     Dosage: 12 MG, ONCE, STRENGTH: 5MG/ML
     Route: 042
     Dates: start: 20160513, end: 20160513
  12. DOXYCYCLINE. [Concomitant]
     Active Substance: DOXYCYCLINE
     Indication: PROPHYLAXIS
     Dosage: 1 TABLET(100 MG), BID
     Route: 048
     Dates: start: 20160609, end: 20160725
  13. METOCLOPRAMIDE HYDROCHLORIDE. [Concomitant]
     Active Substance: METOCLOPRAMIDE HYDROCHLORIDE
     Indication: PROPHYLAXIS
     Dosage: 1 TABLET(5 MG), QD
     Route: 048
     Dates: start: 20160513, end: 20160731
  14. EMEND (FOSAPREPITANT DIMEGLUMINE) [Suspect]
     Active Substance: FOSAPREPITANT DIMEGLUMINE
     Dosage: 150 MG, ONCE
     Route: 042
     Dates: start: 20160818, end: 20160818
  15. EMEND (FOSAPREPITANT DIMEGLUMINE) [Suspect]
     Active Substance: FOSAPREPITANT DIMEGLUMINE
     Dosage: 150 MG, ONCE
     Route: 042
     Dates: start: 20160920, end: 20160920
  16. DEXAMETHASONE SODIUM PHOSPHATE. [Concomitant]
     Active Substance: DEXAMETHASONE SODIUM PHOSPHATE
     Dosage: 12 MG, ONCE, STRENGTH: 5MG/ML
     Route: 042
     Dates: start: 20160611, end: 20160611
  17. DEXAMETHASONE SODIUM PHOSPHATE. [Concomitant]
     Active Substance: DEXAMETHASONE SODIUM PHOSPHATE
     Dosage: 12 MG, ONCE, STRENGTH: 5MG/ML
     Route: 042
     Dates: start: 20160920, end: 20160920
  18. DEXAMETHASONE. [Concomitant]
     Active Substance: DEXAMETHASONE
     Dosage: 4 MG, QD
     Route: 048
     Dates: start: 20160819, end: 20160821
  19. DEXAMETHASONE. [Concomitant]
     Active Substance: DEXAMETHASONE
     Dosage: 4 MG, QD
     Route: 048
     Dates: start: 20160921, end: 20160923
  20. ALOXI [Concomitant]
     Active Substance: PALONOSETRON HYDROCHLORIDE
     Dosage: 5 ML, ONCE
     Route: 042
     Dates: start: 20160818, end: 20160818
  21. EMEND (FOSAPREPITANT DIMEGLUMINE) [Suspect]
     Active Substance: FOSAPREPITANT DIMEGLUMINE
     Dosage: 150 MG, ONCE
     Route: 042
     Dates: start: 20160611, end: 20160611
  22. EPS [Concomitant]
     Dosage: 155 MG, ONCE, CYCLE 2, STRENGTH: 100MG/5ML
     Route: 042
     Dates: start: 20160611, end: 20160611
  23. EPS [Concomitant]
     Dosage: 115 MG, ONCE, CYCLE 4, STRENGTH: 100MG/5ML
     Route: 042
     Dates: start: 20160726, end: 20160726
  24. EPS [Concomitant]
     Dosage: 115 MG, ONCE, CYCLE 5, STRENGTH: 100MG/5ML
     Route: 042
     Dates: start: 20160818, end: 20160818
  25. CISPLATIN. [Concomitant]
     Active Substance: CISPLATIN
     Dosage: 80 MG, ONCE, CYCLE 2, STRENGTH: 50MG/100ML
     Route: 042
     Dates: start: 20160611, end: 20160611
  26. CISPLATIN. [Concomitant]
     Active Substance: CISPLATIN
     Dosage: 80 MG, ONCE, CYCLE 4, STRENGTH: 50MG/100ML
     Route: 042
     Dates: start: 20160726, end: 20160726
  27. CISPLATIN. [Concomitant]
     Active Substance: CISPLATIN
     Dosage: 80 MG, ONCE, CYCLE 5, STRENGTH: 50MG/100ML
     Route: 042
     Dates: start: 20160818, end: 20160818
  28. CISPLATIN. [Concomitant]
     Active Substance: CISPLATIN
     Dosage: 80 MG, ONCE, CYCLE 6, STRENGTH: 50MG/100ML
     Route: 042
     Dates: start: 20160920, end: 20160920
  29. DEXAMETHASONE SODIUM PHOSPHATE. [Concomitant]
     Active Substance: DEXAMETHASONE SODIUM PHOSPHATE
     Dosage: 12 MG, ONCE, STRENGTH: 5MG/ML
     Route: 042
     Dates: start: 20160630, end: 20160630
  30. ALOXI [Concomitant]
     Active Substance: PALONOSETRON HYDROCHLORIDE
     Dosage: 5 ML, ONCE
     Route: 042
     Dates: start: 20160726, end: 20160726
  31. ALOXI [Concomitant]
     Active Substance: PALONOSETRON HYDROCHLORIDE
     Dosage: 5 ML, ONCE
     Route: 042
     Dates: start: 20160920, end: 20160920
  32. EPS [Concomitant]
     Indication: SMALL CELL LUNG CANCER
     Dosage: 155 MG, ONCE, CYCLE 1, STRENGTH: 100MG/5ML
     Route: 042
     Dates: start: 20160513, end: 20160513
  33. CISPLATIN. [Concomitant]
     Active Substance: CISPLATIN
     Dosage: 80 MG, ONCE, CYCLE 3, STRENGTH: 50MG/100ML
     Route: 042
     Dates: start: 20160630, end: 20160630
  34. DEXAMETHASONE SODIUM PHOSPHATE. [Concomitant]
     Active Substance: DEXAMETHASONE SODIUM PHOSPHATE
     Dosage: 8 MG, ONCE, STRENGTH: 5MG/ML
     Route: 042
     Dates: start: 20160612, end: 20160612
  35. DEXAMETHASONE SODIUM PHOSPHATE. [Concomitant]
     Active Substance: DEXAMETHASONE SODIUM PHOSPHATE
     Dosage: 12 MG, ONCE, STRENGTH: 5MG/ML
     Route: 042
     Dates: start: 20160726, end: 20160726
  36. DEXAMETHASONE. [Concomitant]
     Active Substance: DEXAMETHASONE
     Dosage: 8 MG, QD
     Route: 048
     Dates: start: 20160701, end: 20160703
  37. TALION (BEPOTASTINE BESYLATE) [Concomitant]
     Active Substance: BEPOTASTINE
     Indication: PROPHYLAXIS
     Dosage: 1 TABLET(10 MG), BID
     Route: 048
     Dates: start: 20160721, end: 201608
  38. EMEND (FOSAPREPITANT DIMEGLUMINE) [Suspect]
     Active Substance: FOSAPREPITANT DIMEGLUMINE
     Dosage: 150 MG, ONCE
     Route: 042
     Dates: start: 20160630, end: 20160630
  39. ALOXI [Concomitant]
     Active Substance: PALONOSETRON HYDROCHLORIDE
     Dosage: 5 ML, ONCE
     Route: 042
     Dates: start: 20160630, end: 20160630
  40. CODEINE PHOSPHATE [Concomitant]
     Active Substance: CODEINE PHOSPHATE
     Indication: PROPHYLAXIS
     Dosage: 1 TABLET, TID
     Route: 048
     Dates: start: 20160605

REACTIONS (5)
  - Hiccups [Recovered/Resolved]
  - Neutropenia [Recovered/Resolved]
  - Pyrexia [Recovered/Resolved]
  - Seborrhoeic dermatitis [Recovered/Resolved]
  - Stomatitis [Recovered/Resolved]

NARRATIVE: CASE EVENT DATE: 20160602
